FAERS Safety Report 10027932 (Version 1)
Quarter: 2014Q1

REPORT INFORMATION
  Report Type: Spontaneous
  Country: US (occurrence: None)
  Receive Date: 20140319
  Receipt Date: 20140319
  Transmission Date: 20141002
  Serious: Yes (Death)
  Sender: FDA-Public Use
  Company Number: 2234966

PATIENT
  Age: 51 Year
  Sex: Male
  Weight: 60.33 kg

DRUGS (4)
  1. CARBOPLATIN [Suspect]
     Indication: CHRONIC LYMPHOCYTIC LEUKAEMIA
  2. ALIMTA [Suspect]
     Indication: CHRONIC LYMPHOCYTIC LEUKAEMIA
  3. AVASTIN [Suspect]
     Indication: CHRONIC LYMPHOCYTIC LEUKAEMIA
  4. TARCEVA [Concomitant]

REACTIONS (3)
  - Hypermetabolism [None]
  - Non-small cell lung cancer [None]
  - Malignant neoplasm progression [None]
